FAERS Safety Report 9887554 (Version 2)
Quarter: 2014Q1

REPORT INFORMATION
  Report Type: Spontaneous
  Country: AE (occurrence: AE)
  Receive Date: 20140211
  Receipt Date: 20140219
  Transmission Date: 20141002
  Serious: Yes (Other)
  Sender: FDA-Public Use
  Company Number: AE-AMGEN-ARESP2014009255

PATIENT
  Age: 68 Year
  Sex: 0

DRUGS (5)
  1. ENBREL [Suspect]
     Indication: RHEUMATOID ARTHRITIS
     Dosage: 50 MG, WEEKLY
     Route: 058
     Dates: start: 20121231, end: 20140116
  2. FOLIC ACID [Concomitant]
     Dosage: 5 MG, DAILY
     Dates: end: 20140205
  3. METHOTREXATE [Concomitant]
     Dosage: 15 MG (6 TABS OF 2.5 MG) WEEKLY
     Dates: end: 20140205
  4. WARFARIN SODIUM [Concomitant]
     Dosage: 2 MG, DAILY
  5. INSULIN, REGULAR [Concomitant]
     Dosage: 0.1 ML, UNK
     Route: 058

REACTIONS (4)
  - Cough [Recovering/Resolving]
  - Oedema peripheral [Recovering/Resolving]
  - Rash [Recovering/Resolving]
  - Lower respiratory tract infection [Recovering/Resolving]
